FAERS Safety Report 20496262 (Version 1)
Quarter: 2022Q1

REPORT INFORMATION
  Report Type: Spontaneous
  Country: US (occurrence: US)
  Receive Date: 20220221
  Receipt Date: 20220221
  Transmission Date: 20220423
  Serious: Yes (Other)
  Sender: FDA-Public Use
  Company Number: US-Fresenius Kabi-FK202201921

PATIENT
  Age: 73 Year
  Sex: Female

DRUGS (1)
  1. ANASTROZOLE [Suspect]
     Active Substance: ANASTROZOLE
     Indication: Hormone receptor positive breast cancer
     Route: 065

REACTIONS (3)
  - Cystoid macular oedema [Recovered/Resolved]
  - Uveitis [Recovered/Resolved]
  - Vitreoretinal traction syndrome [Recovered/Resolved]
